FAERS Safety Report 18304430 (Version 1)
Quarter: 2020Q3

REPORT INFORMATION
  Report Type: Spontaneous
  Country: US (occurrence: US)
  Receive Date: 20200923
  Receipt Date: 20200923
  Transmission Date: 20201103
  Serious: Yes (Hospitalization)
  Sender: FDA-Public Use
  Company Number: US-ELI_LILLY_AND_COMPANY-US202009005677

PATIENT
  Sex: Male

DRUGS (6)
  1. HUMALOG [Suspect]
     Active Substance: INSULIN LISPRO
     Indication: DIABETES MELLITUS
     Dosage: 50 U, DAILY
     Route: 058
     Dates: start: 2010
  2. HUMALOG [Suspect]
     Active Substance: INSULIN LISPRO
     Dosage: 50 U, DAILY
     Route: 058
  3. OZEMPIC [Concomitant]
     Active Substance: SEMAGLUTIDE
     Indication: DIABETES MELLITUS
     Dosage: 0.5 MG, WEEKLY (1/W)
  4. HUMALOG [Suspect]
     Active Substance: INSULIN LISPRO
     Indication: DIABETES MELLITUS
     Dosage: 50 U, DAILY
     Route: 058
     Dates: start: 2010
  5. HUMALOG [Suspect]
     Active Substance: INSULIN LISPRO
     Dosage: 50 U, DAILY
     Route: 058
  6. TRESIBA [Concomitant]
     Active Substance: INSULIN DEGLUDEC
     Indication: DIABETES MELLITUS
     Dosage: 55 MG, EACH MORNING

REACTIONS (14)
  - Confusional state [Not Recovered/Not Resolved]
  - Peripheral artery occlusion [Not Recovered/Not Resolved]
  - Myocardial infarction [Not Recovered/Not Resolved]
  - Vertigo [Not Recovered/Not Resolved]
  - Nervousness [Not Recovered/Not Resolved]
  - Cerebrovascular accident [Not Recovered/Not Resolved]
  - Neuropathy peripheral [Not Recovered/Not Resolved]
  - Gastric disorder [Not Recovered/Not Resolved]
  - Blood glucose increased [Not Recovered/Not Resolved]
  - Hypertension [Not Recovered/Not Resolved]
  - Feeling abnormal [Not Recovered/Not Resolved]
  - Gait disturbance [Not Recovered/Not Resolved]
  - Renal disorder [Not Recovered/Not Resolved]
  - Overweight [Not Recovered/Not Resolved]
